FAERS Safety Report 19563752 (Version 2)
Quarter: 2021Q3

REPORT INFORMATION
  Report Type: Spontaneous
  Country: US (occurrence: US)
  Receive Date: 20210716
  Receipt Date: 20210813
  Transmission Date: 20211014
  Serious: No
  Sender: FDA-Public Use
  Company Number: US-SA-2021SA231159

PATIENT
  Age: 77 Year
  Sex: Male

DRUGS (1)
  1. DUPIXENT [Suspect]
     Active Substance: DUPILUMAB
     Indication: DERMATITIS ATOPIC
     Dosage: 300 MG, QOW
     Route: 058
     Dates: start: 20210412

REACTIONS (4)
  - Arthralgia [Unknown]
  - Palmar erythema [Recovered/Resolved]
  - Hernia [Recovering/Resolving]
  - Eczema [Recovered/Resolved]

NARRATIVE: CASE EVENT DATE: 2021
